FAERS Safety Report 8934372 (Version 2)
Quarter: 2012Q4

REPORT INFORMATION
  Report Type: 
  Country: IT (occurrence: FR)
  Receive Date: 20121129
  Receipt Date: 20121228
  Transmission Date: 20130627
  Serious: Yes (Death)
  Sender: FDA-Public Use
  Company Number: FR-FRI-1000040612

PATIENT
  Age: 62 Year
  Sex: Female

DRUGS (6)
  1. NEBIVOLOL [Suspect]
     Dosage: 2.5 mg
     Route: 048
     Dates: start: 2009, end: 2012
  2. COVERSYL [Suspect]
     Dosage: 12.5 mg
     Route: 048
     Dates: start: 2009, end: 2012
  3. FLECAINE [Suspect]
     Dosage: 150 mg
     Route: 048
     Dates: start: 2009, end: 2012
  4. KARDEGIC [Suspect]
     Dosage: 75 mg
     Route: 048
     Dates: start: 2011, end: 2012
  5. RUXOLITINIB [Suspect]
     Indication: MYELOFIBROSIS
     Dosage: 40 mg
     Route: 048
     Dates: start: 20120103, end: 20121010
  6. RUXOLITINIB [Suspect]
     Dosage: 20 mg
     Dates: start: 20121011, end: 20121022

REACTIONS (2)
  - Pancreatitis necrotising [Fatal]
  - Multi-organ failure [Fatal]
